FAERS Safety Report 8077420-X (Version None)
Quarter: 2012Q1

REPORT INFORMATION
  Report Type: 
  Country: None (occurrence: None)
  Receive Date: 20120127
  Receipt Date: 20120123
  Transmission Date: 20120608
  Serious: Yes (Other)
  Sender: FDA-Public Use
  Company Number: PHHY2011BE78034

PATIENT
  Sex: Female

DRUGS (2)
  1. ZOMETA [Suspect]
     Indication: METASTASES TO BONE
     Dosage: UNK UKN, UNK
  2. IRESSA [Concomitant]
     Indication: LUNG NEOPLASM MALIGNANT
     Route: 065

REACTIONS (4)
  - METASTASES TO BONE [None]
  - NEOPLASM PROGRESSION [None]
  - BONE LESION [None]
  - NEOPLASM MALIGNANT [None]
